FAERS Safety Report 24603415 (Version 1)
Quarter: 2024Q4

REPORT INFORMATION
  Report Type: Spontaneous
  Country: US (occurrence: None)
  Receive Date: 20241109
  Receipt Date: 20241109
  Transmission Date: 20250114
  Serious: Yes (Other)
  Sender: Public
  Company Number: None

PATIENT
  Age: 60 Year
  Sex: Female
  Weight: 69.75 kg

DRUGS (1)
  1. DEFINITY [Suspect]
     Active Substance: PERFLUTREN
     Indication: Scan with contrast
     Dosage: OTHER FREQUENCY : ADMINISTERED ONCE;?
     Route: 042
     Dates: start: 20241108, end: 20241108

REACTIONS (5)
  - Flushing [None]
  - Chest discomfort [None]
  - Dyspnoea [None]
  - Back pain [None]
  - Muscle spasms [None]

NARRATIVE: CASE EVENT DATE: 20241108
